FAERS Safety Report 21110682 (Version 1)
Quarter: 2022Q3

REPORT INFORMATION
  Report Type: Spontaneous
  Country: CH (occurrence: CH)
  Receive Date: 20220721
  Receipt Date: 20220721
  Transmission Date: 20221027
  Serious: Yes (Other)
  Sender: FDA-Public Use
  Company Number: CH-STRIDES ARCOLAB LIMITED-2022SP008994

PATIENT
  Age: 9 Year
  Sex: Female

DRUGS (1)
  1. OXYBUTYNIN [Suspect]
     Active Substance: OXYBUTYNIN
     Indication: Product used for unknown indication
     Dosage: 45 MILLIGRAM, UNKNOWN
     Route: 048

REACTIONS (6)
  - Accommodation disorder [Unknown]
  - Anticholinergic syndrome [Unknown]
  - Dry mouth [Unknown]
  - Mydriasis [Unknown]
  - Overdose [Unknown]
  - Toxicity to various agents [Unknown]
